FAERS Safety Report 18240295 (Version 1)
Quarter: 2020Q3

REPORT INFORMATION
  Report Type: Spontaneous
  Country: DE (occurrence: DE)
  Receive Date: 20200908
  Receipt Date: 20200908
  Transmission Date: 20201103
  Serious: Yes (Life-Threatening)
  Sender: FDA-Public Use
  Company Number: DE-AUROBINDO-AUR-APL-2020-046770

PATIENT
  Age: 65 Year
  Sex: Male

DRUGS (8)
  1. SEROQUEL [Suspect]
     Active Substance: QUETIAPINE FUMARATE
     Indication: SLEEP DISORDER
     Dosage: 1 DOSAGE FORM, ONCE A DAY  (1 DOSAGE FORM, QD AT 10 PM BEFORE SLEEP)
     Route: 065
  2. MIRTAZAPINE FILM?COATED TABLET [Suspect]
     Active Substance: MIRTAZAPINE
     Indication: DEPRESSION
     Dosage: 1 DOSAGE FORM(1 DOSAGE FORM, HS (10PM BEFORE SLEEP)
     Route: 065
  3. DULOXETIN GLENMARK [Interacting]
     Active Substance: DULOXETINE HYDROCHLORIDE
     Indication: TINNITUS
     Dosage: 30 MILLIGRAM(30 MILLIGRAM, AM ( 1 CAPSULE IN MORNING) STARTED FOR TINNITUS )
     Route: 048
     Dates: start: 202006, end: 202006
  4. ZOPICLONE FILM?COATED TABLET [Suspect]
     Active Substance: ZOPICLONE
     Indication: SLEEP DISORDER
     Dosage: 1 DOSAGE FORM (HS, 10PM BEFORE SLEEP)
     Route: 065
  5. CYMBALTA [Interacting]
     Active Substance: DULOXETINE HYDROCHLORIDE
     Indication: TINNITUS
     Dosage: UNK
     Route: 065
     Dates: start: 202007
  6. DULOXETIN GLENMARK [Interacting]
     Active Substance: DULOXETINE HYDROCHLORIDE
     Dosage: 30 MILLIGRAM, ONCE A DAY(30 MILLIGRAM, QD (TAKING FOR TINNITUS)
     Route: 048
     Dates: start: 202006, end: 202006
  7. DULOXETIN GLENMARK [Interacting]
     Active Substance: DULOXETINE HYDROCHLORIDE
     Dosage: 30 MILLIGRAM (EXPIRED DRUG)
     Route: 048
     Dates: start: 20200804, end: 202008
  8. DULOXETIN GLENMARK [Interacting]
     Active Substance: DULOXETINE HYDROCHLORIDE
     Dosage: 60 MILLIGRAM, ONCE A DAY(60 MILLIGRAM, QD (2 CAPSULE) (TAKING FOR TINNITUS)
     Route: 048
     Dates: start: 202006, end: 202006

REACTIONS (4)
  - Tinnitus [Recovered/Resolved]
  - Expired product administered [Unknown]
  - Drug effective for unapproved indication [Unknown]
  - Drug interaction [Unknown]

NARRATIVE: CASE EVENT DATE: 202006
